FAERS Safety Report 9363777 (Version 4)
Quarter: 2013Q3

REPORT INFORMATION
  Report Type: Report from Study
  Country: US (occurrence: US)
  Receive Date: 20130624
  Receipt Date: 20130808
  Transmission Date: 20140515
  Serious: Yes (Other)
  Sender: FDA-Public Use
  Company Number: US-TEVA-413962USA

PATIENT
  Age: 31 Year
  Sex: Female
  Weight: 95.34 kg

DRUGS (7)
  1. NUVIGIL [Suspect]
     Indication: NARCOLEPSY
     Dates: start: 2008
  2. NUVIGIL [Suspect]
     Dates: start: 2008
  3. ALBUTEROL [Concomitant]
     Indication: ASTHMA
     Dosage: PRN
  4. PRENATAL VITAMINS [Concomitant]
     Indication: PREGNANCY
     Dates: start: 201208
  5. FISH OIL [Concomitant]
     Indication: PREGNANCY
     Dates: start: 201208
  6. GAS X [Concomitant]
     Indication: PREGNANCY
     Dates: start: 201211, end: 201305
  7. Z-PAK [Concomitant]
     Indication: UPPER RESPIRATORY TRACT INFECTION

REACTIONS (6)
  - Amniotic fluid volume decreased [Recovered/Resolved]
  - Beta haemolytic streptococcal infection [Unknown]
  - Blood pressure increased [Unknown]
  - Infection [Unknown]
  - Heart rate increased [Unknown]
  - Live birth [Unknown]
